FAERS Safety Report 7162751-8 (Version None)
Quarter: 2010Q4

REPORT INFORMATION
  Report Type: 
  Country: None (occurrence: None)
  Receive Date: 20101201
  Receipt Date: 20101122
  Transmission Date: 20110411
  Serious: Yes (Hospitalization, Other)
  Sender: FDA-Public Use
  Company Number: 20109333

PATIENT
  Sex: Male

DRUGS (1)
  1. LIORESAL [Suspect]
     Indication: MUSCLE SPASTICITY
     Dosage: DAILY, INTRATHECAL
     Route: 037

REACTIONS (8)
  - COGNITIVE DISORDER [None]
  - HEADACHE [None]
  - LETHARGY [None]
  - MENINGITIS ASEPTIC [None]
  - PAIN [None]
  - PYREXIA [None]
  - SOMNOLENCE [None]
  - VOMITING [None]
